FAERS Safety Report 23326324 (Version 1)
Quarter: 2023Q4

REPORT INFORMATION
  Report Type: Spontaneous
  Country: US (occurrence: None)
  Receive Date: 20231220
  Receipt Date: 20231220
  Transmission Date: 20240110
  Serious: No
  Sender: FDA-Public Use
  Company Number: None

PATIENT
  Sex: Male

DRUGS (1)
  1. PROCRIT [Suspect]
     Active Substance: ERYTHROPOIETIN
     Dosage: OTHER STRENGTH : 10000U/M;?FREQUENCY : WEEKLY;?
     Route: 058
     Dates: start: 202309

REACTIONS (3)
  - Nausea [None]
  - Vomiting [None]
  - Product use issue [None]
